FAERS Safety Report 6310759-4 (Version None)
Quarter: 2009Q3

REPORT INFORMATION
  Report Type: 
  Country: None (occurrence: None)
  Receive Date: 20090811
  Receipt Date: 20090713
  Transmission Date: 20100115
  Serious: Yes (Other)
  Sender: FDA-Public Use
  Company Number: DSM-2009-00969

PATIENT
  Age: 46 Year
  Sex: Female
  Weight: 54 kg

DRUGS (1)
  1. SEVIKAR (OLMESARTAN MEDOXOMIL / AMLODIPINE BASILATE) [Suspect]
     Indication: HYPERTENSION
     Dosage: 40/10MG
     Dates: start: 20090509

REACTIONS (2)
  - BLOOD PRESSURE DECREASED [None]
  - TACHYCARDIA [None]
